FAERS Safety Report 15930370 (Version 1)
Quarter: 2019Q1

REPORT INFORMATION
  Report Type: Spontaneous
  Country: US (occurrence: US)
  Receive Date: 20190115
  Receipt Date: 20190115
  Transmission Date: 20190417
  Serious: No
  Sender: FDA-Public Use
  Company Number: None

PATIENT
  Age: 76 Year
  Sex: Female

DRUGS (1)
  1. CAPECITABINE TAB [Suspect]
     Active Substance: CAPECITABINE
     Indication: NEOPLASM MALIGNANT
     Route: 048
     Dates: start: 201810

REACTIONS (6)
  - Memory impairment [None]
  - Diarrhoea [None]
  - Nausea [None]
  - Decreased appetite [None]
  - Asthenia [None]
  - Product dose omission [None]

NARRATIVE: CASE EVENT DATE: 20190115
